FAERS Safety Report 14707442 (Version 2)
Quarter: 2018Q2

REPORT INFORMATION
  Report Type: Report from Study
  Country: CA (occurrence: CA)
  Receive Date: 20180403
  Receipt Date: 20180404
  Transmission Date: 20180711
  Serious: No
  Sender: FDA-Public Use
  Company Number: CA-ROCHE-2089967

PATIENT
  Age: 28 Year
  Sex: Female

DRUGS (3)
  1. PREDNISONE. [Suspect]
     Active Substance: PREDNISONE
     Indication: PREMEDICATION
     Dosage: UNABLE TO RECALL IF GIVEN BOLUS OF INFUSION ;ONGOING: NO
     Route: 065
     Dates: start: 20180308, end: 20180308
  2. BENADRYL [Suspect]
     Active Substance: DIPHENHYDRAMINE HYDROCHLORIDE
     Indication: PREMEDICATION
     Dosage: PRE MEDICATION OF 50 MG VI PRIOR TO INFUSION
     Route: 040
     Dates: start: 20180308, end: 20180308
  3. OCREVUS [Suspect]
     Active Substance: OCRELIZUMAB
     Indication: RELAPSING-REMITTING MULTIPLE SCLEROSIS
     Dosage: 300MG DAY 1, 15 THEN 600MG Q 6MONTHS
     Route: 042
     Dates: start: 20180308

REACTIONS (2)
  - Infusion related reaction [Recovered/Resolved]
  - Nasopharyngitis [Unknown]

NARRATIVE: CASE EVENT DATE: 20180308
